FAERS Safety Report 5304371-3 (Version None)
Quarter: 2007Q2

REPORT INFORMATION
  Report Type: 
  Country: None (occurrence: None)
  Receive Date: 20070423
  Receipt Date: 20070412
  Transmission Date: 20071010
  Serious: Yes (Hospitalization)
  Sender: FDA-Public Use
  Company Number: FR-ROCHE-492816

PATIENT
  Age: 73 Year
  Sex: Male

DRUGS (8)
  1. ROCEPHIN [Suspect]
     Dosage: FORM: INJECTABLE SOLUTION. DOSAGE REGIMEN: ONE DOSE DAILY.
     Route: 042
     Dates: start: 20070207, end: 20070214
  2. SOLU-MEDROL [Suspect]
     Indication: DRUG USE FOR UNKNOWN INDICATION
     Dosage: FORM: INJECTABLE SOLUTION.
     Route: 042
     Dates: start: 20070207, end: 20070210
  3. SOLU-MEDROL [Suspect]
     Route: 042
     Dates: start: 20070211, end: 20070214
  4. SOLUPRED [Suspect]
     Indication: DRUG USE FOR UNKNOWN INDICATION
     Route: 048
     Dates: start: 20070215
  5. OFLOCET [Suspect]
     Route: 048
     Dates: start: 20070207, end: 20070216
  6. OFLOCET [Suspect]
     Route: 048
     Dates: start: 20061015
  7. OFLOCET [Suspect]
     Route: 048
     Dates: start: 20060815
  8. OFLOCET [Suspect]
     Route: 048
     Dates: start: 20060705

REACTIONS (1)
  - TENDON RUPTURE [None]
